FAERS Safety Report 22007133 (Version 1)
Quarter: 2023Q1

REPORT INFORMATION
  Report Type: Spontaneous
  Country: DE (occurrence: DE)
  Receive Date: 20230217
  Receipt Date: 20230217
  Transmission Date: 20230418
  Serious: Yes (Congenital Anomaly)
  Sender: FDA-Public Use
  Company Number: DE-ANIPHARMA-2023-DE-000023

PATIENT
  Sex: Male

DRUGS (4)
  1. CANDESARTAN CILEXETIL [Suspect]
     Active Substance: CANDESARTAN CILEXETIL
     Indication: Foetal exposure during pregnancy
     Route: 050
     Dates: start: 20210423, end: 20210615
  2. INDAPAMIDE [Suspect]
     Active Substance: INDAPAMIDE
     Dosage: 1.5 MG DAILY
     Route: 050
     Dates: start: 20210423, end: 20210615
  3. ESCITALOPRAM [Suspect]
     Active Substance: ESCITALOPRAM OXALATE
     Dosage: 20 [MG/D (BIS 5) ]/ NO INTAKE FROM GW 8 UNTIL 27.DRUG TREATMENT INDICATION:DEPRESSION + ANXIETY DI
     Route: 050
     Dates: start: 20210423, end: 20220208
  4. ASPIRIN [Suspect]
     Active Substance: ASPIRIN
     Dosage: 150 MG DAILY
     Route: 050

REACTIONS (2)
  - Ventricular septal defect [Unknown]
  - Foetal exposure during pregnancy [Unknown]
